FAERS Safety Report 22585441 (Version 2)
Quarter: 2023Q2

REPORT INFORMATION
  Report Type: Other
  Country: SI (occurrence: SI)
  Receive Date: 20230610
  Receipt Date: 20230629
  Transmission Date: 20230721
  Serious: Yes (Hospitalization, Other)
  Sender: FDA-Public Use
  Company Number: SI-CELLTRION INC.-2023SI011529

PATIENT

DRUGS (14)
  1. INFLIXIMAB [Suspect]
     Active Substance: INFLIXIMAB
     Indication: Abdominal pain upper
     Dosage: DOSAGE1: EXPDT=??-AUG-202
     Route: 042
     Dates: start: 20220708
  2. INFLIXIMAB [Suspect]
     Active Substance: INFLIXIMAB
     Indication: Diarrhoea
  3. INFLIXIMAB [Suspect]
     Active Substance: INFLIXIMAB
     Indication: Weight decreased
  4. INFLIXIMAB [Suspect]
     Active Substance: INFLIXIMAB
     Indication: Diarrhoea
     Dosage: 5 MG/KG
     Route: 042
     Dates: start: 202207
  5. INFLIXIMAB [Suspect]
     Active Substance: INFLIXIMAB
     Indication: Abdominal pain upper
  6. INFLIXIMAB [Suspect]
     Active Substance: INFLIXIMAB
     Indication: Weight decreased
  7. SULFAMETHOXAZOLE\TRIMETHOPRIM [Suspect]
     Active Substance: SULFAMETHOXAZOLE\TRIMETHOPRIM
     Indication: Abdominal pain upper
     Dosage: UNK
     Route: 065
     Dates: start: 202207
  8. SULFAMETHOXAZOLE\TRIMETHOPRIM [Suspect]
     Active Substance: SULFAMETHOXAZOLE\TRIMETHOPRIM
     Indication: Weight decreased
  9. SULFAMETHOXAZOLE\TRIMETHOPRIM [Suspect]
     Active Substance: SULFAMETHOXAZOLE\TRIMETHOPRIM
     Indication: Diarrhoea
  10. RIFAMPIN [Suspect]
     Active Substance: RIFAMPIN
     Indication: Antibiotic prophylaxis
     Route: 065
  11. ISONIAZID [Suspect]
     Active Substance: ISONIAZID
     Indication: Antibiotic prophylaxis
     Route: 065
  12. ERGOCALCIFEROL [Concomitant]
     Active Substance: ERGOCALCIFEROL
     Indication: Product used for unknown indication
     Route: 065
  13. SOLU-MEDROL [Concomitant]
     Active Substance: METHYLPREDNISOLONE SODIUM SUCCINATE
     Indication: Product used for unknown indication
     Dosage: 125 MG
     Route: 065
     Dates: start: 202207
  14. MEDROL [Concomitant]
     Active Substance: METHYLPREDNISOLONE
     Indication: Product used for unknown indication
     Dosage: UNK (IN DESCENDING SCHEME)
     Route: 048
     Dates: start: 202207

REACTIONS (15)
  - Inflammatory bowel disease [Unknown]
  - Enterocolitis [Unknown]
  - Mucous stools [Recovering/Resolving]
  - Metastases to soft tissue [Unknown]
  - Haematochezia [Recovering/Resolving]
  - Abdominal pain upper [Recovering/Resolving]
  - Asthenia [Unknown]
  - Diarrhoea [Recovering/Resolving]
  - Weight decreased [Recovering/Resolving]
  - Serum ferritin increased [Unknown]
  - Decreased appetite [Unknown]
  - Transferrin decreased [Unknown]
  - Interferon gamma release assay positive [Unknown]
  - Nausea [Unknown]
  - Off label use [Unknown]

NARRATIVE: CASE EVENT DATE: 20220701
